FAERS Safety Report 11125629 (Version 3)
Quarter: 2015Q3

REPORT INFORMATION
  Report Type: Report from Study
  Country: JP (occurrence: JP)
  Receive Date: 20150520
  Receipt Date: 20150901
  Transmission Date: 20151125
  Serious: Yes (Hospitalization)
  Sender: FDA-Public Use
  Company Number: JP-ABBVIE-15K-087-1392598-00

PATIENT
  Age: 62 Year
  Sex: Female
  Weight: 64.2 kg

DRUGS (10)
  1. LOSARTAN POTASSIUM. [Concomitant]
     Active Substance: LOSARTAN POTASSIUM
     Indication: HYPERTENSION
     Route: 048
  2. MECOBALAMIN [Concomitant]
     Active Substance: METHYLCOBALAMIN
     Indication: DIZZINESS
     Route: 048
     Dates: start: 20150210
  3. BETAHISTINE MESILATE [Concomitant]
     Active Substance: BETAHISTINE MESILATE
     Indication: DIZZINESS
     Route: 048
     Dates: start: 20150210, end: 20150324
  4. MAGNESIUM OXIDE. [Concomitant]
     Active Substance: MAGNESIUM OXIDE
     Indication: BEHCET^S SYNDROME
     Route: 048
     Dates: start: 20150120
  5. DIMEMORFAN PHOSPHATE [Concomitant]
     Active Substance: DIMEMORFAN PHOSPHATE
     Indication: PHARYNGITIS
     Route: 048
     Dates: start: 20150324, end: 20150330
  6. HUMIRA [Suspect]
     Active Substance: ADALIMUMAB
     Route: 058
     Dates: start: 20150210, end: 20150210
  7. HUMIRA [Suspect]
     Active Substance: ADALIMUMAB
     Indication: BEHCET^S SYNDROME
     Route: 058
     Dates: start: 20150128, end: 20150128
  8. HUMIRA [Suspect]
     Active Substance: ADALIMUMAB
     Route: 058
     Dates: start: 20150224
  9. MESALAZINE [Concomitant]
     Active Substance: MESALAMINE
     Indication: BEHCET^S SYNDROME
     Route: 048
  10. RABEPRAZOLE SODIUM. [Concomitant]
     Active Substance: RABEPRAZOLE SODIUM
     Indication: BEHCET^S SYNDROME
     Route: 048
     Dates: start: 20150310

REACTIONS (3)
  - Pneumonia [Recovered/Resolved]
  - Oropharyngeal pain [Unknown]
  - Liver function test abnormal [Recovered/Resolved]

NARRATIVE: CASE EVENT DATE: 20150324
